FAERS Safety Report 7824351-3 (Version None)
Quarter: 2011Q4

REPORT INFORMATION
  Report Type: 
  Country: None (occurrence: None)
  Receive Date: 20111014
  Receipt Date: 20111011
  Transmission Date: 20120403
  Serious: Yes (Other)
  Sender: FDA-Public Use
  Company Number: 201110929

PATIENT
  Age: 60 Year
  Sex: Male
  Weight: 49 kg

DRUGS (3)
  1. BACLOFEN [Suspect]
     Indication: MUSCLE SPASTICITY
     Dosage: MCG, DAILY, INTRATHECAL
     Route: 037
  2. DANTRIUM [Concomitant]
  3. HARNAL DO.2 [Concomitant]

REACTIONS (2)
  - RESIDUAL URINE VOLUME INCREASED [None]
  - IMPLANT SITE HAEMATOMA [None]
